FAERS Safety Report 26102295 (Version 2)
Quarter: 2025Q4

REPORT INFORMATION
  Report Type: Spontaneous
  Country: US (occurrence: US)
  Receive Date: 20251128
  Receipt Date: 20251201
  Transmission Date: 20260119
  Serious: Yes (Life-Threatening, Hospitalization, Other)
  Sender: B. BRAUN MEDICAL INC.
  Company Number: None

PATIENT
  Age: 57 Year
  Sex: Female

DRUGS (4)
  1. HEPARIN [Suspect]
     Active Substance: HEPARIN SODIUM
  2. ACETAMINOPHEN [Suspect]
     Active Substance: ACETAMINOPHEN
  3. CELECOXIB [Suspect]
     Active Substance: CELECOXIB
  4. GABAPENTIN [Suspect]
     Active Substance: GABAPENTIN

REACTIONS (3)
  - Anaphylactic shock [Unknown]
  - Allergic reaction to excipient [Unknown]
  - Metabolic acidosis [Unknown]
